FAERS Safety Report 5234815-7 (Version None)
Quarter: 2007Q1

REPORT INFORMATION
  Report Type: 
  Country: None (occurrence: None)
  Receive Date: 20070209
  Receipt Date: 20070129
  Transmission Date: 20070707
  Serious: Yes (Hospitalization)
  Sender: FDA-Public Use
  Company Number: JP-PFIZER INC-2006156035

PATIENT
  Sex: Female
  Weight: 52 kg

DRUGS (6)
  1. PHARMORUBICIN [Suspect]
     Indication: BREAST CANCER
     Dosage: DAILY DOSE:150MG
     Route: 042
     Dates: start: 20061011, end: 20061213
  2. FLUOROURACIL [Suspect]
     Indication: BREAST CANCER
     Dosage: DAILY DOSE:750MG
     Route: 042
     Dates: start: 20061011, end: 20061213
  3. ENDOXAN [Suspect]
     Indication: BREAST CANCER
     Dosage: DAILY DOSE:750MG
     Route: 042
     Dates: start: 20061011, end: 20061213
  4. NASEA [Concomitant]
     Route: 042
     Dates: start: 20061010, end: 20061213
  5. KYTRIL [Concomitant]
     Route: 042
     Dates: start: 20061010, end: 20061218
  6. NAUZELIN [Concomitant]
     Route: 048
     Dates: start: 20061010, end: 20061226

REACTIONS (3)
  - CONDITION AGGRAVATED [None]
  - HEPATITIS [None]
  - HEPATITIS B [None]
